FAERS Safety Report 24874657 (Version 1)
Quarter: 2025Q1

REPORT INFORMATION
  Report Type: Spontaneous
  Country: GB (occurrence: GB)
  Receive Date: 20250122
  Receipt Date: 20250122
  Transmission Date: 20250409
  Serious: Yes (Disabling, Other)
  Sender: SANDOZ
  Company Number: None

PATIENT
  Age: 66 Year
  Sex: Female

DRUGS (1)
  1. ANASTROZOLE [Suspect]
     Active Substance: ANASTROZOLE
     Indication: Product used for unknown indication
     Dosage: 1 MG, QD
     Route: 065
     Dates: end: 202412

REACTIONS (16)
  - Anxiety [Recovered/Resolved with Sequelae]
  - Depression [Recovered/Resolved]
  - Brain fog [Recovered/Resolved]
  - Atrophic vulvovaginitis [Not Recovered/Not Resolved]
  - Micturition urgency [Recovering/Resolving]
  - Urinary incontinence [Recovered/Resolved with Sequelae]
  - Pollakiuria [Not Recovered/Not Resolved]
  - Pelvic organ prolapse [Not Recovered/Not Resolved]
  - Uterine prolapse [Not Recovered/Not Resolved]
  - Arthralgia [Recovered/Resolved]
  - Myalgia [Recovered/Resolved]
  - Poor quality sleep [Recovering/Resolving]
  - Dry skin [Recovering/Resolving]
  - Hair growth abnormal [Recovered/Resolved]
  - Alopecia [Recovering/Resolving]
  - Amnesia [Recovered/Resolved]

NARRATIVE: CASE EVENT DATE: 20180101
